FAERS Safety Report 7061998-9 (Version None)
Quarter: 2010Q4

REPORT INFORMATION
  Report Type: 
  Country: None (occurrence: None)
  Receive Date: 20101026
  Receipt Date: 20101019
  Transmission Date: 20110411
  Serious: Yes (Hospitalization)
  Sender: FDA-Public Use
  Company Number: US-BRISTOL-MYERS SQUIBB COMPANY-15298821

PATIENT
  Age: 34 Year
  Sex: Male

DRUGS (4)
  1. ARIPIPRAZOLE [Suspect]
     Indication: SCHIZOPHRENIA
     Dosage: PHASE II 20MG PO ON 02SEP2010.
     Route: 048
     Dates: start: 20100812, end: 20100912
  2. LISINOPRIL [Concomitant]
     Dates: start: 20100618
  3. METFORMIN [Concomitant]
     Dates: start: 20100618
  4. LEVOTHYROXINE [Concomitant]
     Dates: start: 20100618

REACTIONS (1)
  - PSYCHOTIC DISORDER [None]
